FAERS Safety Report 12896635 (Version 1)
Quarter: 2016Q4

REPORT INFORMATION
  Report Type: Spontaneous
  Country: US (occurrence: US)
  Receive Date: 20161028
  Receipt Date: 20161028
  Transmission Date: 20170207
  Serious: Yes (Life-Threatening, Hospitalization, Disabling, Other)
  Sender: FDA-Public Use
  Company Number: None

PATIENT
  Age: 55 Year
  Sex: Male
  Weight: 77.4 kg

DRUGS (8)
  1. RISPERDAL [Concomitant]
     Active Substance: RISPERIDONE
  2. FLOMAX [Concomitant]
     Active Substance: TAMSULOSIN HYDROCHLORIDE
  3. CLONAZEPAM. [Concomitant]
     Active Substance: CLONAZEPAM
  4. AMBIEN [Concomitant]
     Active Substance: ZOLPIDEM TARTRATE
  5. DILANTIN [Concomitant]
     Active Substance: PHENYTOIN
  6. ABILIFY [Suspect]
     Active Substance: ARIPIPRAZOLE
     Indication: OBSESSIVE-COMPULSIVE DISORDER
     Dosage: ?          QUANTITY:2 CAPSULE(S);?
     Route: 048
     Dates: start: 20100101, end: 20100501
  7. BENADRYL [Concomitant]
     Active Substance: DIPHENHYDRAMINE HYDROCHLORIDE
  8. DEPAKOTE [Concomitant]
     Active Substance: DIVALPROEX SODIUM

REACTIONS (11)
  - Compulsive sexual behaviour [None]
  - Generalised tonic-clonic seizure [None]
  - Tremor [None]
  - Headache [None]
  - Anxiety [None]
  - Dizziness [None]
  - Suicidal ideation [None]
  - Memory impairment [None]
  - Gambling [None]
  - Obsessive-compulsive disorder [None]
  - Balance disorder [None]

NARRATIVE: CASE EVENT DATE: 20100101
